FAERS Safety Report 24612392 (Version 2)
Quarter: 2024Q4

REPORT INFORMATION
  Report Type: Spontaneous
  Country: US (occurrence: US)
  Receive Date: 20241113
  Receipt Date: 20241218
  Transmission Date: 20250115
  Serious: Yes (Life-Threatening, Other)
  Sender: HIKMA
  Company Number: US-HIKMA PHARMACEUTICALS-US-H14001-24-10346

PATIENT
  Sex: Female
  Weight: 62.1 kg

DRUGS (7)
  1. BLINATUMOMAB [Suspect]
     Active Substance: BLINATUMOMAB
     Indication: Product used for unknown indication
     Dosage: UNKNOWN
     Route: 065
  2. CYCLOPHOSPHAMIDE [Suspect]
     Active Substance: CYCLOPHOSPHAMIDE
     Indication: Acute lymphocytic leukaemia
     Dosage: 1260 MILLIGRAM, SINGLE
     Route: 065
     Dates: start: 20241002, end: 20241004
  3. CYTARABINE [Suspect]
     Active Substance: CYTARABINE
     Indication: Chemotherapy
     Dosage: UNK
     Route: 037
     Dates: start: 20241015
  4. DEXAMETHASONE [Suspect]
     Active Substance: DEXAMETHASONE
     Indication: Acute lymphocytic leukaemia
     Dosage: 80 MILLIGRAM, SINGLE
     Route: 065
     Dates: start: 20241002, end: 20241005
  5. DOXORUBICIN [Suspect]
     Active Substance: DOXORUBICIN
     Indication: Acute lymphocytic leukaemia
     Dosage: 63 MHZ, SINGLE
     Route: 065
     Dates: start: 20241005, end: 20241005
  6. METHOTREXATE [Suspect]
     Active Substance: METHOTREXATE
     Indication: Acute lymphocytic leukaemia
     Dosage: 12 MILLIGRAM, SINGLE
     Route: 065
     Dates: start: 20241004, end: 20241004
  7. VINCRISTINE SULFATE [Suspect]
     Active Substance: VINCRISTINE SULFATE
     Indication: Product used for unknown indication
     Dosage: 2 MILLIGRAM, SINGLE
     Route: 065
     Dates: start: 20241002, end: 20241002

REACTIONS (13)
  - Colitis [Recovering/Resolving]
  - Abdominal pain [Unknown]
  - Diarrhoea [Unknown]
  - Tenderness [Unknown]
  - Pyrexia [Unknown]
  - Neutropenia [Unknown]
  - Febrile neutropenia [Unknown]
  - Ultrasound liver abnormal [Unknown]
  - Gallbladder enlargement [Unknown]
  - Large intestine perforation [Unknown]
  - Abscess intestinal [Unknown]
  - Diverticulitis [Unknown]
  - Clostridium difficile colitis [Unknown]

NARRATIVE: CASE EVENT DATE: 20241007
